FAERS Safety Report 8922981 (Version 1)
Quarter: 2012Q4

REPORT INFORMATION
  Report Type: Spontaneous
  Country: US (occurrence: None)
  Receive Date: 20121115
  Receipt Date: 20121115
  Transmission Date: 20130627
  Serious: Yes (Hospitalization)
  Sender: FDA-Public Use
  Company Number: IMP_06067_2012

PATIENT
  Age: 21 Year
  Sex: Female

DRUGS (2)
  1. MINOCYCLINE [Suspect]
     Indication: ACNE
     Dosage: (DF)  (2 years until not continuing)
  2. ORTHO-TRI-CYCLEN LO [Concomitant]

REACTIONS (21)
  - Fatigue [None]
  - Myalgia [None]
  - Educational problem [None]
  - Salt craving [None]
  - Polyuria [None]
  - Contusion [None]
  - Dyspnoea exertional [None]
  - Pharyngitis [None]
  - Weight decreased [None]
  - Headache [None]
  - Ejection fraction decreased [None]
  - Blood sodium decreased [None]
  - Blood potassium decreased [None]
  - Blood chloride decreased [None]
  - Sinus tachycardia [None]
  - Proteinuria [None]
  - Renal artery stenosis [None]
  - Renal neoplasm [None]
  - Polyarteritis nodosa [None]
  - Renal aneurysm [None]
  - Diastolic hypertension [None]
